FAERS Safety Report 6311318-X (Version None)
Quarter: 2009Q3

REPORT INFORMATION
  Report Type: 
  Country: None (occurrence: None)
  Receive Date: 20090817
  Receipt Date: 20090803
  Transmission Date: 20100115
  Serious: Yes (Hospitalization, Other)
  Sender: FDA-Public Use
  Company Number: PHHY2009PL30020

PATIENT
  Age: 19 Year
  Sex: Female

DRUGS (5)
  1. CARBAMAZEPINE [Suspect]
     Indication: BORDERLINE PERSONALITY DISORDER
     Dosage: 400 MG, / DAY
  2. CARBAMAZEPINE [Suspect]
     Dosage: 800 MG, / DAY
  3. CITALOPRAM HYDROBROMIDE [Concomitant]
     Dosage: 20 MG, / DAY
  4. ZUCLOPENTHIXOL [Concomitant]
     Dosage: 50 MG, UNK
  5. ZUCLOPENTHIXOL [Concomitant]
     Dosage: 150 MG, UNK

REACTIONS (28)
  - ASTHENIA [None]
  - BODY TEMPERATURE INCREASED [None]
  - CONJUNCTIVAL HYPERAEMIA [None]
  - CONJUNCTIVITIS [None]
  - COUGH [None]
  - DERMATITIS [None]
  - DYSPHORIA [None]
  - ERYTHEMA [None]
  - EYELID OEDEMA [None]
  - FACE OEDEMA [None]
  - HALLUCINATION, AUDITORY [None]
  - HEADACHE [None]
  - HYPERSENSITIVITY [None]
  - INFECTION [None]
  - LACRIMATION INCREASED [None]
  - MEASLES [None]
  - MOUTH ULCERATION [None]
  - MUMPS [None]
  - ORAL DISORDER [None]
  - OROPHARYNGEAL PAIN [None]
  - PHOTOSENSITIVITY REACTION [None]
  - PRURITUS [None]
  - PSYCHOMOTOR HYPERACTIVITY [None]
  - RASH MACULO-PAPULAR [None]
  - SELF-INJURIOUS IDEATION [None]
  - SUICIDAL IDEATION [None]
  - TONSILLAR HYPERTROPHY [None]
  - UPPER RESPIRATORY TRACT INFECTION [None]
